FAERS Safety Report 5235144-8 (Version None)
Quarter: 2007Q1

REPORT INFORMATION
  Report Type: 
  Country: None (occurrence: None)
  Receive Date: 20070207
  Receipt Date: 20070126
  Transmission Date: 20070707
  Serious: Yes (Hospitalization)
  Sender: FDA-Public Use
  Company Number: B0446578A

PATIENT
  Age: 42 Year
  Sex: Female
  Weight: 54.8852 kg

DRUGS (8)
  1. PAXIL [Suspect]
     Indication: DEPRESSION
     Dosage: UNK / PER DAY / ORAL
     Route: 048
     Dates: start: 20050516, end: 20050531
  2. MEPIVACAINE (MEPIVACAINE HYDROCHLORIDE) (FORMULATION UNKNOWN) [Suspect]
     Indication: PAIN IN EXTREMITY
     Dosage: UNK / PER DAY / EPIDURAL
     Route: 008
     Dates: start: 20050513, end: 20050601
  3. ROPIVACAINE HCL (ROPIVACAINE HCL) (FORMULATION UNKNOWN) [Suspect]
     Indication: PAIN IN EXTREMITY
     Dosage: 4 ML / TWICE PER DAY / EPIDURAL
     Route: 008
     Dates: start: 20050518, end: 20050531
  4. TANDOSPIRONE CITRATE [Concomitant]
  5. AMITRIPTYLINE HCL [Concomitant]
  6. BROTIZOLAM [Concomitant]
  7. LORNOXICAM [Concomitant]
  8. REBAMIPIDE [Concomitant]

REACTIONS (10)
  - ALANINE AMINOTRANSFERASE INCREASED [None]
  - ASPARTATE AMINOTRANSFERASE INCREASED [None]
  - CATHETER RELATED COMPLICATION [None]
  - CHOLELITHIASIS [None]
  - CONDITION AGGRAVATED [None]
  - EOSINOPHIL COUNT INCREASED [None]
  - FEELING ABNORMAL [None]
  - HEPATIC FUNCTION ABNORMAL [None]
  - LIVER DISORDER [None]
  - PYREXIA [None]
